FAERS Safety Report 16905005 (Version 1)
Quarter: 2019Q4

REPORT INFORMATION
  Report Type: Spontaneous
  Country: US (occurrence: US)
  Receive Date: 20191010
  Receipt Date: 20191010
  Transmission Date: 20200122
  Serious: Yes (Other)
  Sender: FDA-Public Use
  Company Number: None

PATIENT
  Age: 36 Year
  Sex: Male
  Weight: 83.25 kg

DRUGS (2)
  1. MUCUS DM EXTENDED RELEASE [Suspect]
     Active Substance: DEXTROMETHORPHAN HYDROBROMIDE\GUAIFENESIN
     Indication: RHINORRHOEA
     Dosage: ?          QUANTITY:20 TABLET(S);?
     Route: 048
     Dates: start: 20191010, end: 20191010
  2. MUCUS DM EXTENDED RELEASE [Suspect]
     Active Substance: DEXTROMETHORPHAN HYDROBROMIDE\GUAIFENESIN
     Indication: ANTITUSSIVE THERAPY
     Dosage: ?          QUANTITY:20 TABLET(S);?
     Route: 048
     Dates: start: 20191010, end: 20191010

REACTIONS (5)
  - Chest discomfort [None]
  - Ear congestion [None]
  - Presyncope [None]
  - Throat tightness [None]
  - Palpitations [None]

NARRATIVE: CASE EVENT DATE: 20191010
